FAERS Safety Report 14165207 (Version 3)
Quarter: 2017Q4

REPORT INFORMATION
  Report Type: Report from Study
  Country: US (occurrence: US)
  Receive Date: 20171107
  Receipt Date: 20171206
  Transmission Date: 20180321
  Serious: Yes (Other)
  Sender: FDA-Public Use
  Company Number: US-TAIHO ONCOLOGY INC-EU-2017-01329

PATIENT
  Age: 66 Year
  Sex: Female
  Weight: 63.56 kg

DRUGS (8)
  1. LITHIUM. [Concomitant]
     Active Substance: LITHIUM
  2. ATIVAN [Concomitant]
     Active Substance: LORAZEPAM
  3. LONSURF [Suspect]
     Active Substance: TIPIRACIL HYDROCHLORIDE\TRIFLURIDINE
     Indication: COLORECTAL CANCER
  4. LONSURF [Suspect]
     Active Substance: TIPIRACIL HYDROCHLORIDE\TRIFLURIDINE
     Indication: COLON CANCER STAGE IV
     Dosage: CYCLE 1
     Route: 048
     Dates: start: 20171009, end: 20171020
  5. EFFEXOR [Concomitant]
     Active Substance: VENLAFAXINE HYDROCHLORIDE
  6. TRAZODONE [Concomitant]
     Active Substance: TRAZODONE HYDROCHLORIDE
  7. ADALAT [Concomitant]
     Active Substance: NIFEDIPINE
  8. COLECALCIFEROL [Concomitant]
     Active Substance: CHOLECALCIFEROL

REACTIONS (5)
  - Nausea [Recovered/Resolved]
  - Diarrhoea [Unknown]
  - Hypophagia [Unknown]
  - Dehydration [Unknown]
  - Vomiting [Recovered/Resolved]

NARRATIVE: CASE EVENT DATE: 201710
